FAERS Safety Report 6137498-7 (Version None)
Quarter: 2009Q1

REPORT INFORMATION
  Report Type: 
  Country: None (occurrence: None)
  Receive Date: 20090326
  Receipt Date: 20090312
  Transmission Date: 20090719
  Serious: Yes (Other)
  Sender: FDA-Public Use
  Company Number: 8044227

PATIENT
  Age: 51 Year
  Sex: Female

DRUGS (1)
  1. KEPPRA [Suspect]
     Dosage: 500 MG 2/D
     Dates: start: 20090101

REACTIONS (1)
  - BLOOD GLUCOSE DECREASED [None]
